FAERS Safety Report 5168739-0 (Version None)
Quarter: 2006Q4

REPORT INFORMATION
  Report Type: 
  Country: None (occurrence: None)
  Receive Date: 20061211
  Receipt Date: 20061201
  Transmission Date: 20070319
  Serious: Yes (Other)
  Sender: FDA-Public Use
  Company Number: US-JNJFOC-20061200903

PATIENT
  Sex: Female
  Weight: 88.45 kg

DRUGS (11)
  1. INFLIXIMAB [Suspect]
     Indication: RHEUMATOID ARTHRITIS
     Route: 042
  2. POTASSIUM ACETATE [Concomitant]
  3. FOLIC ACID [Concomitant]
  4. PREDNISONE TAB [Concomitant]
  5. HYDROCODONE [Concomitant]
     Dosage: 5/500 DAILY
  6. ASPIRIN [Concomitant]
  7. DIOVAN HCT [Concomitant]
     Dosage: 160/12.5 DAILY
  8. ADVAIR DISKUS 100/50 [Concomitant]
     Dosage: 250/50 TWICE DAILY
  9. ALBUTEROL [Concomitant]
     Route: 055
  10. ATROVENT [Concomitant]
     Route: 055
  11. LOVESTATIN [Concomitant]

REACTIONS (1)
  - BREAST CANCER [None]
